FAERS Safety Report 7097751-X (Version None)
Quarter: 2010Q4

REPORT INFORMATION
  Report Type: 
  Country: None (occurrence: None)
  Receive Date: 20101103
  Receipt Date: 20101027
  Transmission Date: 20110411
  Serious: Yes (Hospitalization, Other)
  Sender: FDA-Public Use
  Company Number: TRP_06558_2009

PATIENT
  Sex: Female
  Weight: 53.4791 kg

DRUGS (8)
  1. RIBAVARIN [Suspect]
     Indication: HEPATITIS C
     Dosage: (1000 MG QD, ORAL) (800 MG QD, ORAL)
     Route: 048
     Dates: start: 20090729, end: 20090911
  2. RIBAVARIN [Suspect]
     Indication: HEPATITIS C
     Dosage: (1000 MG QD, ORAL) (800 MG QD, ORAL)
     Route: 048
     Dates: start: 20100729, end: 20100904
  3. RIBAVIRIN [Suspect]
     Indication: HEPATITIS C
     Dosage: ALSO NOTED AS RIBAPAK AND COPEGUS
     Dates: start: 20090101
  4. RIBAVIRIN [Suspect]
     Indication: HEPATITIS C
     Dosage: ALSO NOTED AS RIBAPAK AND COPEGUS
     Dates: start: 20100709
  5. PEGASYS [Suspect]
     Indication: HEPATITIS C
     Dosage: (180 UG 1X/WEEK, [UNK; ALSO NOTED AS: 180 UNITS 5 X WEEKLY; STARTED 25-JUL-2009; STARTED 31-JUL-2009
     Route: 058
     Dates: start: 20090729, end: 20090911
  6. PEG-INTRON [Suspect]
     Indication: HEPATITIS C
     Dosage: 80
     Dates: start: 20100709, end: 20100904
  7. PROCRIT /00909301/ [Concomitant]
  8. ARANESP [Concomitant]

REACTIONS (6)
  - ABDOMINAL PAIN [None]
  - CHEST DISCOMFORT [None]
  - INCISION SITE PAIN [None]
  - MIGRAINE [None]
  - PANCREATITIS [None]
  - PANCYTOPENIA [None]
